FAERS Safety Report 23070009 (Version 1)
Quarter: 2023Q4

REPORT INFORMATION
  Report Type: Spontaneous
  Country: US (occurrence: None)
  Receive Date: 20231016
  Receipt Date: 20231016
  Transmission Date: 20240110
  Serious: Yes (Life-Threatening, Hospitalization)
  Sender: FDA-Public Use
  Company Number: None

PATIENT
  Age: 87 Year
  Sex: Female
  Weight: 66.1 kg

DRUGS (1)
  1. IOPAMIDOL [Suspect]
     Active Substance: IOPAMIDOL
     Indication: Scan with contrast
     Route: 042
     Dates: start: 20231012, end: 20231012

REACTIONS (3)
  - Respiratory distress [None]
  - Swelling face [None]
  - Contrast media allergy [None]

NARRATIVE: CASE EVENT DATE: 20231012
